FAERS Safety Report 8051107-1 (Version None)
Quarter: 2012Q1

REPORT INFORMATION
  Report Type: 
  Country: None (occurrence: None)
  Receive Date: 20120117
  Receipt Date: 20120112
  Transmission Date: 20120608
  Serious: Yes (Hospitalization)
  Sender: FDA-Public Use
  Company Number: PHHO2011FR021521

PATIENT
  Sex: Female

DRUGS (2)
  1. EVEROLIMUS [Suspect]
     Indication: ENDOMETRIAL CANCER
     Dosage: 10 MG, QD
     Route: 048
     Dates: start: 20090423, end: 20111220
  2. EVEROLIMUS [Suspect]
     Dosage: 5 MG, QD
     Route: 048
     Dates: start: 20120110

REACTIONS (1)
  - MYOCARDIAL ISCHAEMIA [None]
